FAERS Safety Report 9402739 (Version 1)
Quarter: 2013Q3

REPORT INFORMATION
  Report Type: Spontaneous
  Country: US (occurrence: None)
  Receive Date: 20130712
  Receipt Date: 20130712
  Transmission Date: 20140515
  Serious: Yes (Death)
  Sender: FDA-Public Use
  Company Number: 2013US001900

PATIENT
  Age: 51 Year
  Sex: Female

DRUGS (1)
  1. ICLUSIG [Suspect]
     Indication: ACUTE LEUKAEMIA
     Route: 048

REACTIONS (1)
  - Death [None]
